FAERS Safety Report 9837515 (Version 1)
Quarter: 2013Q4

REPORT INFORMATION
  Report Type: Spontaneous
  Country: US (occurrence: None)
  Receive Date: 20131205
  Receipt Date: 20131205
  Transmission Date: 20140711
  Serious: Yes (Other)
  Sender: FDA-Public Use
  Company Number: 163-POMAL-13093388

PATIENT
  Age: 62 Year
  Sex: Male
  Weight: 89.81 kg

DRUGS (6)
  1. POMALYST (POMALIDOMIDE) (4 MILLIGRAM, CAPSULES) [Suspect]
     Indication: PLASMA CELL MYELOMA
     Dosage: 1 IN 1 D
     Route: 048
     Dates: start: 20130813, end: 20130910
  2. CYMBALTA [Concomitant]
  3. DECADRON [Concomitant]
  4. ENALAPRIL MALEATE [Concomitant]
  5. NAPROSYN [Concomitant]
  6. PROCRIT [Concomitant]

REACTIONS (4)
  - Productive cough [None]
  - Pyrexia [None]
  - Paraesthesia [None]
  - Constipation [None]
